FAERS Safety Report 19785931 (Version 9)
Quarter: 2021Q4

REPORT INFORMATION
  Report Type: Report from Study
  Country: US (occurrence: None)
  Receive Date: 20210903
  Receipt Date: 20211119
  Transmission Date: 20220303
  Serious: Yes (Hospitalization)
  Sender: FDA-Public Use
  Company Number: US-EISAI MEDICAL RESEARCH-EC-2021-098864

PATIENT
  Age: 77 Year
  Sex: Female
  Weight: 70.3 kg

DRUGS (21)
  1. LENVATINIB [Suspect]
     Active Substance: LENVATINIB
     Indication: Non-small cell lung cancer metastatic
     Route: 048
     Dates: start: 20210507, end: 20210705
  2. LENVATINIB [Suspect]
     Active Substance: LENVATINIB
     Dosage: STARTING DOSE 20MG, FLUCTUATED DOSAGE
     Route: 048
     Dates: start: 20210706, end: 20210815
  3. LENVATINIB [Suspect]
     Active Substance: LENVATINIB
     Route: 048
     Dates: start: 20210816, end: 20210816
  4. PEMBROLIZUMAB [Suspect]
     Active Substance: PEMBROLIZUMAB
     Indication: Non-small cell lung cancer metastatic
     Route: 042
     Dates: start: 20210507, end: 20210528
  5. PEMBROLIZUMAB [Suspect]
     Active Substance: PEMBROLIZUMAB
     Route: 042
     Dates: start: 20210618, end: 20210618
  6. PEMBROLIZUMAB [Suspect]
     Active Substance: PEMBROLIZUMAB
     Route: 042
     Dates: start: 20210706, end: 20210730
  7. PEMBROLIZUMAB [Suspect]
     Active Substance: PEMBROLIZUMAB
     Route: 042
     Dates: start: 20210820, end: 20210820
  8. TYLENOL [Concomitant]
     Active Substance: ACETAMINOPHEN
     Dates: start: 20160629, end: 20210827
  9. GLUCOPHAGE XR [Concomitant]
     Active Substance: METFORMIN HYDROCHLORIDE
     Dates: start: 20190110
  10. MINERALS\VITAMINS [Concomitant]
     Active Substance: MINERALS\VITAMINS
     Dates: start: 20201023, end: 20210901
  11. CHOLECALCIFEROL [Concomitant]
     Active Substance: CHOLECALCIFEROL
     Dates: start: 20201026, end: 20210910
  12. OCEAN SALINE NASAL SPRAY [Concomitant]
     Active Substance: SODIUM CHLORIDE
     Dates: start: 20210125, end: 20210901
  13. ZOCOR [Concomitant]
     Active Substance: SIMVASTATIN
     Dates: start: 20190326
  14. COZAAR [Concomitant]
     Active Substance: LOSARTAN POTASSIUM
     Dates: start: 20190430
  15. LEVOTHYROXINE SODIUM [Concomitant]
     Active Substance: LEVOTHYROXINE SODIUM
     Dates: start: 20210324
  16. ZOFRAN [Concomitant]
     Active Substance: ONDANSETRON HYDROCHLORIDE
     Dates: start: 20210507, end: 20210910
  17. NAPROSYN [Concomitant]
     Active Substance: NAPROXEN
     Dates: start: 20210514, end: 20210702
  18. ROBITUSSIN DM [Concomitant]
     Active Substance: DEXTROMETHORPHAN HYDROBROMIDE\GUAIFENESIN
     Dates: start: 20210514, end: 20210901
  19. ALUMINIUM HYDROXIDE;DIPHENHYDRAMINE HYDROCHLORIDE;MAGNESIUM HYDROXIDE; [Concomitant]
     Dates: start: 20210603, end: 20210901
  20. DIFLUCAN [Concomitant]
     Active Substance: FLUCONAZOLE
     Dates: start: 20210618, end: 20210730
  21. LOTRIMIN [Concomitant]
     Active Substance: CLOTRIMAZOLE
     Dates: start: 20210623, end: 20210730

REACTIONS (2)
  - Oropharyngeal pain [Recovering/Resolving]
  - Dyspnoea [Recovered/Resolved]

NARRATIVE: CASE EVENT DATE: 20210702
